FAERS Safety Report 8374328-7 (Version None)
Quarter: 2012Q2

REPORT INFORMATION
  Report Type: 
  Country: None (occurrence: None)
  Receive Date: 20120518
  Receipt Date: 20120518
  Transmission Date: 20120825
  Serious: Yes (Death)
  Sender: FDA-Public Use
  Company Number: None

PATIENT
  Sex: Male
  Weight: 86.1834 kg

DRUGS (1)
  1. ZITHROMAX [Suspect]
     Indication: UPPER RESPIRATORY TRACT INFECTION
     Dosage: 1 DAILY
     Dates: start: 20041018, end: 20041020

REACTIONS (4)
  - VIRAL INFECTION [None]
  - FATIGUE [None]
  - LIVER DISORDER [None]
  - CARDIAC FAILURE [None]
